FAERS Safety Report 25135191 (Version 1)
Quarter: 2025Q1

REPORT INFORMATION
  Report Type: Spontaneous
  Country: FR (occurrence: FR)
  Receive Date: 20250328
  Receipt Date: 20250328
  Transmission Date: 20250409
  Serious: Yes (Life-Threatening, Other)
  Sender: TEVA
  Company Number: None

PATIENT
  Age: 58 Year
  Sex: Male
  Weight: 78.5 kg

DRUGS (2)
  1. DIAZEPAM [Suspect]
     Active Substance: DIAZEPAM
     Indication: Product used for unknown indication
     Route: 065
     Dates: start: 20241227, end: 20241227
  2. METHADONE HYDROCHLORIDE [Suspect]
     Active Substance: METHADONE HYDROCHLORIDE
     Indication: Product used for unknown indication
     Dosage: TAKE 80MG (USUALLY 50MG/DAY)
     Route: 065
     Dates: start: 20241228, end: 20241228

REACTIONS (4)
  - Overdose [Recovered/Resolved]
  - Miosis [Recovered/Resolved]
  - Hypotension [Recovered/Resolved]
  - Drug dependence [Not Recovered/Not Resolved]

NARRATIVE: CASE EVENT DATE: 20241228
